FAERS Safety Report 4355156-6 (Version None)
Quarter: 2004Q2

REPORT INFORMATION
  Report Type: 
  Country: None (occurrence: None)
  Receive Date: 20040504
  Receipt Date: 20040422
  Transmission Date: 20050107
  Serious: Yes (Other)
  Sender: FDA-Public Use
  Company Number: 2003175587GB

PATIENT
  Sex: Female

DRUGS (1)
  1. CELEBREX [Suspect]
     Indication: JOINT SWELLING
     Dosage: 100 MG, QD, ORAL
     Route: 048

REACTIONS (9)
  - ABDOMINAL PAIN LOWER [None]
  - DEFICIENCY ANAEMIA [None]
  - DIARRHOEA [None]
  - DIVERTICULUM [None]
  - FAECAL OCCULT BLOOD POSITIVE [None]
  - GASTRIC POLYPS [None]
  - GASTRITIS [None]
  - HIATUS HERNIA [None]
  - WEIGHT DECREASED [None]
